FAERS Safety Report 25842416 (Version 1)
Quarter: 2025Q3

REPORT INFORMATION
  Report Type: Spontaneous
  Country: US (occurrence: US)
  Receive Date: 20250924
  Receipt Date: 20250924
  Transmission Date: 20251021
  Serious: Yes (Other)
  Sender: AXSOME THERAPEUTICS
  Company Number: US-AXS-AXS202509-001629

PATIENT
  Sex: Female

DRUGS (1)
  1. AUVELITY [Suspect]
     Active Substance: BUPROPION HYDROCHLORIDE\DEXTROMETHORPHAN HYDROBROMIDE
     Indication: Major depression
     Route: 048
     Dates: end: 20250916

REACTIONS (2)
  - Seizure [Recovered/Resolved]
  - Nausea [Recovered/Resolved]
